FAERS Safety Report 23064147 (Version 1)
Quarter: 2023Q4

REPORT INFORMATION
  Report Type: Spontaneous
  Country: US (occurrence: US)
  Receive Date: 20231013
  Receipt Date: 20231013
  Transmission Date: 20240110
  Serious: Yes (Other)
  Sender: FDA-Public Use
  Company Number: US-BAYER-2023A143090

PATIENT
  Age: 53 Year
  Sex: Male

DRUGS (2)
  1. ASPIRIN [Suspect]
     Active Substance: ASPIRIN
     Indication: Lacunar infarction
  2. ASPIRIN [Suspect]
     Active Substance: ASPIRIN
     Indication: Basal ganglia infarction

REACTIONS (1)
  - Basal ganglia haemorrhage [None]
